FAERS Safety Report 5249328-6 (Version None)
Quarter: 2007Q1

REPORT INFORMATION
  Report Type: 
  Country: None (occurrence: None)
  Receive Date: 20070223
  Receipt Date: 20070212
  Transmission Date: 20070707
  Serious: Yes (Death)
  Sender: FDA-Public Use
  Company Number: 2007-154459-NL

PATIENT
  Sex: Male

DRUGS (2)
  1. DEXAMETHASONE [Suspect]
     Indication: MATERNAL THERAPY TO ENHANCE FOETAL LUNG MATURITY
  2. TERBUTALINE SULFATE [Suspect]
     Indication: PROPHYLAXIS

REACTIONS (7)
  - ANEURYSM RUPTURED [None]
  - BRADYCARDIA FOETAL [None]
  - CAESAREAN SECTION [None]
  - DRUG EXPOSURE DURING PREGNANCY [None]
  - FOETAL DISORDER [None]
  - STILLBIRTH [None]
  - TACHYCARDIA FOETAL [None]
